FAERS Safety Report 6523028-4 (Version None)
Quarter: 2009Q4

REPORT INFORMATION
  Report Type: 
  Country: None (occurrence: None)
  Receive Date: 20091222
  Receipt Date: 20091215
  Transmission Date: 20100525
  Serious: Yes (Hospitalization)
  Sender: FDA-Public Use
  Company Number: AMAG200900076

PATIENT
  Age: 68 Year
  Sex: Female
  Weight: 54.5 kg

DRUGS (17)
  1. FERAHEME [Suspect]
     Indication: IRON DEFICIENCY ANAEMIA
     Dosage: 510 MG, SINGLE, INTRAVENOUS
     Route: 042
     Dates: start: 20091209, end: 20091209
  2. EPINEPHRINE [Suspect]
     Dosage: 1 MG, SINGLE, INTRAVENOUS
     Route: 042
     Dates: start: 20091209, end: 20091209
  3. SOLUMEDROL (METHYLPREDNISOLONE SODIUM SUCCINATE) 140MG [Concomitant]
     Dosage: 140 MG, SINGLE, INTRAVENOUS
     Route: 042
     Dates: start: 20091209, end: 20091209
  4. ADVAIR DISKUS 100/50 [Concomitant]
  5. DIGOXIN [Concomitant]
  6. FOLIC ACID [Concomitant]
  7. SPIRIVA [Concomitant]
  8. VASOTEC [Concomitant]
  9. ASPIRIN [Concomitant]
  10. EPOGEN [Concomitant]
  11. HEPARIN [Concomitant]
  12. LANTUS [Concomitant]
  13. METOPROLOL TARTRATE [Concomitant]
  14. NEURONTIN [Concomitant]
  15. ZEMPLAR [Concomitant]
  16. RENAGEL [Concomitant]
  17. VANCOMYCIN [Concomitant]

REACTIONS (8)
  - DYSPNOEA [None]
  - HEART RATE INCREASED [None]
  - HYPERTENSION [None]
  - LIP SWELLING [None]
  - NAUSEA [None]
  - OXYGEN SATURATION DECREASED [None]
  - SWOLLEN TONGUE [None]
  - TACHYCARDIA [None]
